FAERS Safety Report 15115458 (Version 1)
Quarter: 2018Q3

REPORT INFORMATION
  Report Type: Report from Study
  Country: ZA (occurrence: ZA)
  Receive Date: 20180706
  Receipt Date: 20180706
  Transmission Date: 20181010
  Serious: Yes (Death, Hospitalization, Other)
  Sender: FDA-Public Use
  Company Number: ZA-AMGEN-ZAFSL2018092182

PATIENT
  Age: 80 Year
  Sex: Male

DRUGS (2)
  1. ARANESP [Suspect]
     Active Substance: DARBEPOETIN ALFA
     Indication: CHRONIC KIDNEY DISEASE
     Dosage: 80 MCG, QWK
     Route: 058
     Dates: start: 201404, end: 201806
  2. ARANESP [Suspect]
     Active Substance: DARBEPOETIN ALFA
     Indication: ANAEMIA

REACTIONS (2)
  - Myocardial infarction [Fatal]
  - Hospitalisation [Unknown]

NARRATIVE: CASE EVENT DATE: 201806
